FAERS Safety Report 4763549-8 (Version None)
Quarter: 2005Q3

REPORT INFORMATION
  Report Type: 
  Country: None (occurrence: None)
  Receive Date: 20050908
  Receipt Date: 20050811
  Transmission Date: 20060218
  Serious: Yes (Hospitalization, Disabling, Other)
  Sender: FDA-Public Use
  Company Number: US-BRISTOL-MYERS SQUIBB COMPANY-13072756

PATIENT
  Age: 83 Year
  Sex: Male

DRUGS (3)
  1. ERBITUX [Suspect]
     Indication: COLON CANCER
     Route: 042
     Dates: start: 20050809, end: 20050809
  2. PALONOSETRON [Concomitant]
     Indication: PREMEDICATION
     Route: 042
     Dates: start: 20050809, end: 20050809
  3. DEXAMETHASONE [Concomitant]
     Indication: PREMEDICATION
     Route: 042
     Dates: start: 20050809, end: 20050809

REACTIONS (2)
  - BLOOD PRESSURE DECREASED [None]
  - COMA [None]
